FAERS Safety Report 12951676 (Version 2)
Quarter: 2016Q4

REPORT INFORMATION
  Report Type: Spontaneous
  Country: US (occurrence: US)
  Receive Date: 20161117
  Receipt Date: 20161221
  Transmission Date: 20170207
  Serious: No
  Sender: FDA-Public Use
  Company Number: US-NOVOPROD-485328

PATIENT
  Age: 84 Year
  Sex: Male

DRUGS (2)
  1. NOVOLOG [Suspect]
     Active Substance: INSULIN ASPART
     Indication: TYPE 3 DIABETES MELLITUS
     Dosage: 6 U, TID
     Route: 058
     Dates: start: 2013
  2. LEVEMIR [Suspect]
     Active Substance: INSULIN DETEMIR
     Indication: TYPE 3 DIABETES MELLITUS
     Dosage: 16 U, QD
     Route: 058
     Dates: start: 2013

REACTIONS (2)
  - Tremor [Not Recovered/Not Resolved]
  - Off label use [Unknown]
